FAERS Safety Report 13026995 (Version 2)
Quarter: 2017Q1

REPORT INFORMATION
  Report Type: Report from Study
  Country: DE (occurrence: DE)
  Receive Date: 20161214
  Receipt Date: 20170106
  Transmission Date: 20170428
  Serious: Yes (Hospitalization)
  Sender: FDA-Public Use
  Company Number: DE-CELLTRION INC.-2016DE013454

PATIENT

DRUGS (3)
  1. COLESTYRAMINE [Concomitant]
     Active Substance: CHOLESTYRAMINE
     Dosage: UNK
     Dates: start: 20160625
  2. INFLECTRA [Suspect]
     Active Substance: INFLIXIMAB-DYYB
     Indication: PRODUCT USED FOR UNKNOWN INDICATION
     Dosage: 5 MG/KG, EVERY 8 WEEKS
     Route: 042
     Dates: start: 201601, end: 201610
  3. ACETYLSALICYLIC ACID [Concomitant]
     Active Substance: ASPIRIN
     Dosage: UNK

REACTIONS (1)
  - Pneumonia influenzal [Recovered/Resolved]

NARRATIVE: CASE EVENT DATE: 201610
